FAERS Safety Report 6339753-4 (Version None)
Quarter: 2009Q3

REPORT INFORMATION
  Report Type: 
  Country: None (occurrence: None)
  Receive Date: 20090903
  Receipt Date: 20090825
  Transmission Date: 20100115
  Serious: Yes (Other)
  Sender: FDA-Public Use
  Company Number: US-ELI_LILLY_AND_COMPANY-US200908005627

PATIENT
  Sex: Female

DRUGS (1)
  1. CYMBALTA [Suspect]
     Indication: BACK PAIN
     Dosage: 60 MG, DAILY (1/D)
     Route: 065
     Dates: start: 20081001, end: 20090801

REACTIONS (6)
  - BLADDER NEOPLASM [None]
  - DIARRHOEA [None]
  - DRUG INEFFECTIVE [None]
  - IRRITABILITY [None]
  - PAIN [None]
  - WITHDRAWAL SYNDROME [None]
